FAERS Safety Report 7561856-7 (Version None)
Quarter: 2011Q2

REPORT INFORMATION
  Report Type: 
  Country: None (occurrence: None)
  Receive Date: 20110621
  Receipt Date: 20110617
  Transmission Date: 20111010
  Serious: Yes (Other)
  Sender: FDA-Public Use
  Company Number: IE-ABBOTT-11P-229-0733584-00

PATIENT
  Age: 38 Year
  Sex: Female

DRUGS (6)
  1. SEVOFLURANE [Suspect]
     Indication: MAINTENANCE OF ANAESTHESIA
     Dosage: IN OXYGEN AND NITROUS OXIDE OF 60:40
  2. ROCURONIUM BROMIDE [Concomitant]
     Indication: INDUCTION OF ANAESTHESIA
     Dosage: 1.2 MG/KG
  3. GLYCOPYRROLATE [Concomitant]
     Indication: PRODUCT USED FOR UNKNOWN INDICATION
  4. PROSTIGMIN BROMIDE [Concomitant]
     Indication: PRODUCT USED FOR UNKNOWN INDICATION
  5. NITROUS OXIDE [Concomitant]
     Indication: MAINTENANCE OF ANAESTHESIA
     Dosage: WITH OXYGEN IN A RATIO 60:40
  6. THIOPENTAL SODIUM [Concomitant]
     Indication: INDUCTION OF ANAESTHESIA

REACTIONS (1)
  - NEUROMUSCULAR BLOCK PROLONGED [None]
